FAERS Safety Report 8858032 (Version 2)
Quarter: 2013Q4

REPORT INFORMATION
  Report Type: Spontaneous
  Country: CA (occurrence: CA)
  Receive Date: 20121024
  Receipt Date: 20131105
  Transmission Date: 20140711
  Serious: Yes (Other)
  Sender: FDA-Public Use
  Company Number: CA-009507513-1206USA01372

PATIENT
  Age: 64 Year
  Sex: Male
  Weight: 81.65 kg

DRUGS (11)
  1. SINEMET CR [Suspect]
     Indication: PARKINSON^S DISEASE
     Dosage: 100/25
     Route: 048
     Dates: start: 20100719, end: 20111019
  2. SINEMET CR [Suspect]
     Dosage: 25 MG, Q3H
     Route: 048
     Dates: start: 20100719, end: 20111019
  3. CLONAZEPAM [Concomitant]
     Indication: PRODUCT USED FOR UNKNOWN INDICATION
     Dosage: 1 MG, BID
     Route: 048
     Dates: start: 20110928
  4. CLONAZEPAM [Concomitant]
     Dosage: 0.25 MG, BID
  5. HYDROMORPHONE [Concomitant]
     Indication: PRODUCT USED FOR UNKNOWN INDICATION
     Dosage: 4 MG, QD
     Dates: start: 20110414
  6. HYDROMORPHONE [Concomitant]
     Dosage: 2 MG, BID
  7. QUETIAPINE FUMARATE [Concomitant]
     Indication: PRODUCT USED FOR UNKNOWN INDICATION
     Dosage: 12.5 MG, HS
     Route: 048
     Dates: start: 20110915
  8. QUETIAPINE FUMARATE [Concomitant]
     Dosage: 25 MG, HS
  9. TESTOSTERONE [Concomitant]
     Indication: PRODUCT USED FOR UNKNOWN INDICATION
     Dosage: 100 MG, Q2 WEEKS
     Dates: start: 20110822
  10. ZOPICLONE [Concomitant]
     Indication: PRODUCT USED FOR UNKNOWN INDICATION
     Dosage: 7.5 MG, HS
     Route: 048
     Dates: start: 20100812
  11. ZOPICLONE [Concomitant]
     Dosage: 15 MG, HS

REACTIONS (4)
  - Abdominal discomfort [Unknown]
  - Drug ineffective [Unknown]
  - Product substitution issue [Unknown]
  - Product physical issue [Unknown]
